FAERS Safety Report 13718707 (Version 1)
Quarter: 2017Q3

REPORT INFORMATION
  Report Type: Report from Study
  Country: GR (occurrence: GR)
  Receive Date: 20170705
  Receipt Date: 20170705
  Transmission Date: 20171127
  Serious: Yes (Death)
  Sender: FDA-Public Use
  Company Number: GR-PFIZER INC-2017279651

PATIENT
  Age: 2 Month
  Sex: Female

DRUGS (10)
  1. AMIKACIN [Concomitant]
     Active Substance: AMIKACIN
     Indication: PNEUMONIA KLEBSIELLA
  2. TIGECYCLINE. [Suspect]
     Active Substance: TIGECYCLINE
     Indication: PNEUMONIA KLEBSIELLA
  3. CIPROFLOXACIN. [Concomitant]
     Active Substance: CIPROFLOXACIN
     Indication: SEPSIS
     Dosage: UNK
  4. TIGECYCLINE. [Suspect]
     Active Substance: TIGECYCLINE
     Indication: SEPSIS
     Dosage: 1.25 MG/KG, 2X/DAY [MAINTENANCE DOSE, DOSE (BID): 4.8 MG]
     Route: 042
  5. AMIKACIN [Concomitant]
     Active Substance: AMIKACIN
     Indication: SEPSIS
     Dosage: UNK
  6. CHLORAMPHENICOL [Concomitant]
     Active Substance: CHLORAMPHENICOL
     Indication: PNEUMONIA KLEBSIELLA
  7. CHLORAMPHENICOL [Concomitant]
     Active Substance: CHLORAMPHENICOL
     Indication: SEPSIS
     Dosage: UNK
  8. CIPROFLOXACIN. [Concomitant]
     Active Substance: CIPROFLOXACIN
     Indication: PNEUMONIA KLEBSIELLA
  9. COLISTIN [Concomitant]
     Active Substance: COLISTIN
     Indication: SEPSIS
     Dosage: UNK
  10. COLISTIN [Concomitant]
     Active Substance: COLISTIN
     Indication: PNEUMONIA KLEBSIELLA

REACTIONS (1)
  - Treatment failure [Fatal]
